FAERS Safety Report 12094947 (Version 1)
Quarter: 2016Q1

REPORT INFORMATION
  Report Type: Spontaneous
  Country: US (occurrence: US)
  Receive Date: 20160219
  Receipt Date: 20160219
  Transmission Date: 20160526
  Serious: Yes (Other)
  Sender: FDA-Public Use
  Company Number: US-BAYER-2016-026345

PATIENT
  Age: 71 Year
  Sex: Female

DRUGS (1)
  1. BAYER LOW DOSE [Suspect]
     Active Substance: ASPIRIN
     Indication: ANTICOAGULANT THERAPY
     Dosage: 1 DF, QD

REACTIONS (8)
  - Drug dependence [None]
  - Fatigue [None]
  - Circumstance or information capable of leading to medication error [None]
  - Therapeutic response unexpected [None]
  - Dysgeusia [None]
  - Off label use [None]
  - Weight decreased [None]
  - Asthenia [None]
